FAERS Safety Report 15749202 (Version 10)
Quarter: 2020Q1

REPORT INFORMATION
  Report Type: Report from Study
  Country: None (occurrence: IL)
  Receive Date: 20181221
  Receipt Date: 20200114
  Transmission Date: 20200409
  Serious: Yes (Hospitalization, Other)
  Sender: FDA-Public Use
  Company Number: IL-ABBVIE-18K-082-2272289-00

PATIENT
  Age: 64 Year
  Sex: Female

DRUGS (10)
  1. DUODOPA [Suspect]
     Active Substance: CARBIDOPA\LEVODOPA
     Dosage: MD 14.5ML, CD 4.4ML/HOUR, ED 0.8ML
     Route: 050
     Dates: start: 2018
  2. DUODOPA [Suspect]
     Active Substance: CARBIDOPA\LEVODOPA
     Dosage: CURRENT: MD 14.5ML, CD 4.7ML/HOUR, ED 0.8ML
     Route: 050
  3. IRON [Suspect]
     Active Substance: IRON
     Indication: BLOOD IRON DECREASED
     Route: 042
  4. ASPIRIN. [Suspect]
     Active Substance: ASPIRIN
     Indication: PRODUCT USED FOR UNKNOWN INDICATION
     Route: 065
     Dates: start: 201812
  5. DUODOPA [Suspect]
     Active Substance: CARBIDOPA\LEVODOPA
     Dosage: CURRENT MORNING DOSE- 14.5 ML, CONTINUOUS RATE- 5 ML/ HOUR,?CURRENT EXTRA DOSE- 0.8 ML
     Route: 050
  6. DUODOPA [Suspect]
     Active Substance: CARBIDOPA\LEVODOPA
     Dosage: CURRENT MORNING DOSE- 14.5 ML, CONTINUOUS RATE- 4.7 ML/ HOUR,?CURRENT EXTRA DOSE- 0.8 ML
     Route: 050
  7. DOPICAR [Suspect]
     Active Substance: CARBIDOPA\LEVODOPA
     Indication: PRODUCT USED FOR UNKNOWN INDICATION
     Route: 065
  8. NEXIUM [Concomitant]
     Active Substance: ESOMEPRAZOLE MAGNESIUM
     Indication: PRODUCT USED FOR UNKNOWN INDICATION
  9. DUODOPA [Suspect]
     Active Substance: CARBIDOPA\LEVODOPA
     Indication: PARKINSON^S DISEASE
     Dosage: MD 14.5ML, CD 4.1ML/HOUR, ED 0.5ML.
     Route: 050
     Dates: start: 20180201, end: 2018
  10. DUODOPA [Suspect]
     Active Substance: CARBIDOPA\LEVODOPA
     Dosage: CURRENT MORNING DOSE- 14.5 ML, CONTINUOUS RATE- 5.0 ML/ HOUR, CURRENT EXTRA DOSE- 0.8 ML
     Route: 050

REACTIONS (27)
  - General physical condition abnormal [Unknown]
  - Iron overload [Unknown]
  - Drug hypersensitivity [Unknown]
  - Gait disturbance [Unknown]
  - Vomiting [Unknown]
  - Weight decreased [Unknown]
  - Pain [Unknown]
  - Nausea [Recovered/Resolved]
  - Hypophagia [Unknown]
  - Malaise [Unknown]
  - Nausea [Unknown]
  - Medical device pain [Not Recovered/Not Resolved]
  - Feeling abnormal [Unknown]
  - Dysphagia [Recovered/Resolved]
  - Chills [Unknown]
  - Speech disorder [Unknown]
  - Drug ineffective [Unknown]
  - Dysuria [Unknown]
  - Vomiting [Recovered/Resolved]
  - Pain in extremity [Unknown]
  - Nausea [Recovered/Resolved]
  - Vomiting [Recovered/Resolved]
  - On and off phenomenon [Not Recovered/Not Resolved]
  - Urinary tract infection [Unknown]
  - Dysphagia [Unknown]
  - Dehydration [Unknown]
  - Abdominal pain [Not Recovered/Not Resolved]

NARRATIVE: CASE EVENT DATE: 2018
